FAERS Safety Report 8725484 (Version 2)
Quarter: 2012Q4

REPORT INFORMATION
  Report Type: 
  Country: VN (occurrence: VN)
  Receive Date: 20120815
  Receipt Date: 20121030
  Transmission Date: 20130627
  Serious: Yes (Hospitalization)
  Sender: FDA-Public Use
  Company Number: VN-BAXTER-2012BAX014138

PATIENT
  Age: 65 Year
  Sex: Female

DRUGS (4)
  1. DIANEAL LOW CALCIUM (2,5MEQ.L) PERITIONEAL DIALYSIS SOLUTION WITH 1.5% [Suspect]
     Indication: CONTINUOUS AMBULATORY PERITONEAL DIALYSIS
     Dosage: 3 BAGS/DAY
     Route: 033
     Dates: start: 20110301
  2. DIANEAL LOW CALCIUM (2,5MEQ.L) PERITIONEAL DIALYSIS SOLUTION WITH 2.5% [Suspect]
     Indication: CONTINUOUS AMBULATORY PERITONEAL DIALYSIS
     Dosage: 1 BAG/DAY
     Route: 033
     Dates: start: 20110301
  3. SMECTA [Suspect]
     Indication: DIARRHEA
     Route: 065
  4. IMODIUM [Suspect]
     Indication: DIARRHEA
     Route: 065

REACTIONS (3)
  - Pyrexia [Unknown]
  - Peritonitis [Recovered/Resolved]
  - Diarrhoea [Unknown]
